FAERS Safety Report 20719811 (Version 2)
Quarter: 2022Q2

REPORT INFORMATION
  Report Type: Spontaneous
  Country: US (occurrence: US)
  Receive Date: 20220418
  Receipt Date: 20220526
  Transmission Date: 20220720
  Serious: No
  Sender: FDA-Public Use
  Company Number: US-PFIZER INC-202200454278

PATIENT
  Age: 11 Year
  Sex: Male

DRUGS (1)
  1. GENOTROPIN [Suspect]
     Active Substance: SOMATROPIN
     Indication: Growth retardation
     Dosage: 1.3 UNSURE IF MG OR ML. GIVES IN THIGH

REACTIONS (3)
  - Wrong technique in device usage process [Unknown]
  - Device breakage [Unknown]
  - Device leakage [Unknown]
